FAERS Safety Report 14213243 (Version 1)
Quarter: 2017Q4

REPORT INFORMATION
  Report Type: Spontaneous
  Country: US (occurrence: US)
  Receive Date: 20171122
  Receipt Date: 20171122
  Transmission Date: 20180321
  Serious: No
  Sender: FDA-Public Use
  Company Number: None

PATIENT
  Age: 88 Year
  Sex: Female

DRUGS (1)
  1. CLONAZEPAM. [Suspect]
     Active Substance: CLONAZEPAM
     Route: 048
     Dates: start: 20171117, end: 20171122

REACTIONS (5)
  - Hyperhidrosis [None]
  - Product substitution issue [None]
  - Feeling abnormal [None]
  - Anxiety [None]
  - Palpitations [None]
